FAERS Safety Report 8485389 (Version 8)
Quarter: 2012Q4

REPORT INFORMATION
  Report Type: 
  Country: US (occurrence: US)
  Receive Date: 20120330
  Receipt Date: 20120927
  Transmission Date: 20130627
  Serious: Yes (Hospitalization, Disabling, Other)
  Sender: FDA-Public Use
  Company Number: US-009507513-1203USA03375

PATIENT

DRUGS (6)
  1. FOSAMAX [Suspect]
     Indication: OSTEOPOROSIS
     Dosage: 70 mg, QW
     Route: 048
     Dates: start: 20060329
  2. FOSAMAX [Suspect]
     Indication: OSTEOPENIA
     Dosage: 70 mg, QW
     Route: 048
     Dates: start: 200907
  3. FOSAMAX [Suspect]
     Indication: OSTEOPOROSIS
     Dosage: 70 mg, QW
     Route: 048
     Dates: start: 20090103
  4. MINERALS (UNSPECIFIED) [Concomitant]
     Dates: start: 1999, end: 2009
  5. CENTRUM SILVER [Concomitant]
     Dates: start: 1999, end: 2009
  6. VITAMIN D (UNSPECIFIED) [Concomitant]
     Dates: start: 1999, end: 2009

REACTIONS (72)
  - Femur fracture [Not Recovered/Not Resolved]
  - Low turnover osteopathy [Not Recovered/Not Resolved]
  - Pneumonia staphylococcal [Not Recovered/Not Resolved]
  - Back disorder [Unknown]
  - Cardiac failure congestive [Recovering/Resolving]
  - Appendicectomy [Unknown]
  - Venous insufficiency [Unknown]
  - Cardiac failure congestive [Unknown]
  - Intraocular lens implant [Unknown]
  - Diabetic gastroparesis [Unknown]
  - Chondrocalcinosis [Unknown]
  - Chest pain [Recovered/Resolved]
  - Cellulitis [Recovering/Resolving]
  - Urinary retention [Not Recovered/Not Resolved]
  - Hypoxia [Not Recovered/Not Resolved]
  - Asthma [Recovering/Resolving]
  - Fluid retention [Unknown]
  - Thrombocytopenia [Unknown]
  - Hypotension [Unknown]
  - Haemorrhagic anaemia [Not Recovered/Not Resolved]
  - Tachycardia [Unknown]
  - Renal failure [Unknown]
  - Hypoglycaemia [Unknown]
  - Wound infection staphylococcal [Recovered/Resolved]
  - Renal failure [Unknown]
  - Adverse event [Unknown]
  - Decubitus ulcer [Not Recovered/Not Resolved]
  - Surgical failure [Unknown]
  - Tracheobronchitis [Recovered/Resolved]
  - Enterobacter infection [Unknown]
  - Bronchial hyperreactivity [Unknown]
  - Inadequate diet [Unknown]
  - Renal failure chronic [Unknown]
  - Asthma [Unknown]
  - Anaemia of chronic disease [Unknown]
  - Musculoskeletal chest pain [Recovering/Resolving]
  - Gastritis [Recovered/Resolved]
  - Oedema peripheral [Not Recovered/Not Resolved]
  - Anaemia [Unknown]
  - Peripheral vascular disorder [Unknown]
  - Cellulitis [Unknown]
  - Diabetes mellitus inadequate control [Unknown]
  - Hyperlipidaemia [Not Recovered/Not Resolved]
  - Depression [Not Recovered/Not Resolved]
  - Impaired healing [Unknown]
  - Heart valve incompetence [Unknown]
  - Postoperative wound complication [Unknown]
  - Asthenia [Unknown]
  - Bladder disorder [Unknown]
  - Increased tendency to bruise [Unknown]
  - Dry skin [Unknown]
  - Bladder spasm [Unknown]
  - Bladder pain [Unknown]
  - Anxiety [Not Recovered/Not Resolved]
  - Chronic obstructive pulmonary disease [Not Recovered/Not Resolved]
  - Sensitivity of teeth [Unknown]
  - Dental caries [Unknown]
  - Tooth disorder [Unknown]
  - Dyslipidaemia [Unknown]
  - Fall [Unknown]
  - Angina pectoris [Not Recovered/Not Resolved]
  - Pulmonary congestion [Recovering/Resolving]
  - Chondrocalcinosis pyrophosphate [Unknown]
  - Blood cholesterol increased [Unknown]
  - Eye disorder [Unknown]
  - Onychomycosis [Unknown]
  - Coronary artery disease [Unknown]
  - Hypoaesthesia [Unknown]
  - Paraesthesia [Unknown]
  - Oedema peripheral [Unknown]
  - Back pain [Not Recovered/Not Resolved]
  - Drug hypersensitivity [Unknown]
